FAERS Safety Report 23153317 (Version 1)
Quarter: 2023Q4

REPORT INFORMATION
  Report Type: Spontaneous
  Country: US (occurrence: None)
  Receive Date: 20231106
  Receipt Date: 20231106
  Transmission Date: 20240110
  Serious: Yes (Disabling)
  Sender: FDA-Public Use
  Company Number: None

PATIENT
  Age: 66 Year
  Sex: Male

DRUGS (1)
  1. VICTOZA [Suspect]
     Active Substance: LIRAGLUTIDE
     Dosage: OTHER QUANTITY : 1.8 INJECTION(S);?
     Dates: start: 20231011, end: 20231022

REACTIONS (2)
  - Diarrhoea [None]
  - Diarrhoea [None]

NARRATIVE: CASE EVENT DATE: 20231012
